FAERS Safety Report 25571256 (Version 2)
Quarter: 2025Q3

REPORT INFORMATION
  Report Type: Spontaneous
  Country: EU (occurrence: EU)
  Receive Date: 20250717
  Receipt Date: 20250729
  Transmission Date: 20251021
  Serious: Yes (Life-Threatening)
  Sender: MYLAN
  Company Number: None

PATIENT
  Age: 65 Year
  Sex: Male
  Weight: 72 kg

DRUGS (16)
  1. AMLODIPINE [Suspect]
     Active Substance: AMLODIPINE BESYLATE
     Indication: Product used for unknown indication
  2. AMLODIPINE [Suspect]
     Active Substance: AMLODIPINE BESYLATE
     Route: 065
  3. AMLODIPINE [Suspect]
     Active Substance: AMLODIPINE BESYLATE
     Route: 065
  4. AMLODIPINE [Suspect]
     Active Substance: AMLODIPINE BESYLATE
  5. INDAPAMIDE [Suspect]
     Active Substance: INDAPAMIDE
     Indication: Product used for unknown indication
  6. INDAPAMIDE [Suspect]
     Active Substance: INDAPAMIDE
     Route: 065
  7. INDAPAMIDE [Suspect]
     Active Substance: INDAPAMIDE
     Route: 065
  8. INDAPAMIDE [Suspect]
     Active Substance: INDAPAMIDE
  9. KETOPROFEN [Suspect]
     Active Substance: KETOPROFEN
     Indication: Product used for unknown indication
  10. KETOPROFEN [Suspect]
     Active Substance: KETOPROFEN
     Route: 065
  11. KETOPROFEN [Suspect]
     Active Substance: KETOPROFEN
     Route: 065
  12. KETOPROFEN [Suspect]
     Active Substance: KETOPROFEN
  13. METOPROLOL [Suspect]
     Active Substance: METOPROLOL
     Indication: Product used for unknown indication
  14. METOPROLOL [Suspect]
     Active Substance: METOPROLOL
     Route: 065
  15. METOPROLOL [Suspect]
     Active Substance: METOPROLOL
     Route: 065
  16. METOPROLOL [Suspect]
     Active Substance: METOPROLOL

REACTIONS (2)
  - Restlessness [Recovered/Resolved]
  - Depressed mood [Recovered/Resolved]

NARRATIVE: CASE EVENT DATE: 20211214
